FAERS Safety Report 9456147 (Version 1)
Quarter: 2013Q3

REPORT INFORMATION
  Report Type: Spontaneous
  Country: US (occurrence: US)
  Receive Date: 20130813
  Receipt Date: 20130813
  Transmission Date: 20140515
  Serious: Yes (Death, Other)
  Sender: FDA-Public Use
  Company Number: US-ENDO PHARMACEUTICALS INC.-OPER20130021

PATIENT
  Age: 28 Year
  Sex: Female

DRUGS (2)
  1. OPANA ER [Suspect]
     Indication: DRUG ABUSE
     Dosage: UNKNOWN
  2. FLUOXETINE [Suspect]
     Indication: OVERDOSE
     Dosage: UNKNOWN
     Route: 065

REACTIONS (4)
  - Toxicity to various agents [Fatal]
  - Respiratory failure [Fatal]
  - Overdose [Fatal]
  - Drug abuse [Not Recovered/Not Resolved]
